FAERS Safety Report 18792363 (Version 1)
Quarter: 2021Q1

REPORT INFORMATION
  Report Type: Spontaneous
  Country: US (occurrence: US)
  Receive Date: 20210127
  Receipt Date: 20210127
  Transmission Date: 20210419
  Serious: Yes (Other)
  Sender: FDA-Public Use
  Company Number: US-BRISTOL-MYERS SQUIBB COMPANY-BMS-2021-006036

PATIENT
  Sex: Female

DRUGS (1)
  1. ELIQUIS [Suspect]
     Active Substance: APIXABAN
     Indication: PRODUCT USED FOR UNKNOWN INDICATION
     Dosage: TWICE DAILY
     Route: 065

REACTIONS (4)
  - Myasthenia gravis [Unknown]
  - Atrial fibrillation [Unknown]
  - Cardiac disorder [Unknown]
  - Chronic obstructive pulmonary disease [Unknown]
